FAERS Safety Report 25163053 (Version 1)
Quarter: 2025Q2

REPORT INFORMATION
  Report Type: Spontaneous
  Country: DE (occurrence: DE)
  Receive Date: 20250404
  Receipt Date: 20250404
  Transmission Date: 20250717
  Serious: Yes (Hospitalization, Other)
  Sender: MYLAN
  Company Number: DE-EMB-M202310113-1

PATIENT
  Sex: Female
  Weight: 1.87 kg

DRUGS (48)
  1. VENLAFAXINE [Suspect]
     Active Substance: VENLAFAXINE HYDROCHLORIDE
     Indication: Depression
     Dosage: 37.5 MILLIGRAM, QD (+ PREC)
     Dates: start: 202307, end: 202403
  2. VENLAFAXINE [Suspect]
     Active Substance: VENLAFAXINE HYDROCHLORIDE
     Dosage: 37.5 MILLIGRAM, QD (+ PREC)
     Dates: start: 202307, end: 202403
  3. VENLAFAXINE [Suspect]
     Active Substance: VENLAFAXINE HYDROCHLORIDE
     Dosage: 37.5 MILLIGRAM, QD (+ PREC)
     Route: 064
     Dates: start: 202307, end: 202403
  4. VENLAFAXINE [Suspect]
     Active Substance: VENLAFAXINE HYDROCHLORIDE
     Dosage: 37.5 MILLIGRAM, QD (+ PREC)
     Route: 064
     Dates: start: 202307, end: 202403
  5. VENLAFAXINE [Suspect]
     Active Substance: VENLAFAXINE HYDROCHLORIDE
     Dosage: 37.5 MILLIGRAM, QD (+ PREC)
     Dates: start: 202307, end: 202403
  6. VENLAFAXINE [Suspect]
     Active Substance: VENLAFAXINE HYDROCHLORIDE
     Dosage: 37.5 MILLIGRAM, QD (+ PREC)
     Dates: start: 202307, end: 202403
  7. VENLAFAXINE [Suspect]
     Active Substance: VENLAFAXINE HYDROCHLORIDE
     Dosage: 37.5 MILLIGRAM, QD (+ PREC)
     Route: 064
     Dates: start: 202307, end: 202403
  8. VENLAFAXINE [Suspect]
     Active Substance: VENLAFAXINE HYDROCHLORIDE
     Dosage: 37.5 MILLIGRAM, QD (+ PREC)
     Route: 064
     Dates: start: 202307, end: 202403
  9. MIRTAZAPINE [Concomitant]
     Active Substance: MIRTAZAPINE
     Indication: Sleep disorder
     Dosage: 7.5 MILLIGRAM, QD
     Dates: start: 202312, end: 202312
  10. MIRTAZAPINE [Concomitant]
     Active Substance: MIRTAZAPINE
     Dosage: 7.5 MILLIGRAM, QD
     Dates: start: 202312, end: 202312
  11. MIRTAZAPINE [Concomitant]
     Active Substance: MIRTAZAPINE
     Dosage: 7.5 MILLIGRAM, QD
     Route: 064
     Dates: start: 202312, end: 202312
  12. MIRTAZAPINE [Concomitant]
     Active Substance: MIRTAZAPINE
     Dosage: 7.5 MILLIGRAM, QD
     Route: 064
     Dates: start: 202312, end: 202312
  13. MIRTAZAPINE [Concomitant]
     Active Substance: MIRTAZAPINE
     Dosage: 7.5 MILLIGRAM, QD
     Dates: start: 202312, end: 202312
  14. MIRTAZAPINE [Concomitant]
     Active Substance: MIRTAZAPINE
     Dosage: 7.5 MILLIGRAM, QD
     Dates: start: 202312, end: 202312
  15. MIRTAZAPINE [Concomitant]
     Active Substance: MIRTAZAPINE
     Dosage: 7.5 MILLIGRAM, QD
     Route: 064
     Dates: start: 202312, end: 202312
  16. MIRTAZAPINE [Concomitant]
     Active Substance: MIRTAZAPINE
     Dosage: 7.5 MILLIGRAM, QD
     Route: 064
     Dates: start: 202312, end: 202312
  17. ASPIRIN [Concomitant]
     Active Substance: ASPIRIN
     Indication: Prophylaxis
     Dosage: 150 MILLIGRAM, QD (+ PREC.0-0-150 MG/D)
     Dates: start: 202307, end: 202403
  18. ASPIRIN [Concomitant]
     Active Substance: ASPIRIN
     Dosage: 150 MILLIGRAM, QD (+ PREC.0-0-150 MG/D)
     Dates: start: 202307, end: 202403
  19. ASPIRIN [Concomitant]
     Active Substance: ASPIRIN
     Dosage: 150 MILLIGRAM, QD (+ PREC.0-0-150 MG/D)
     Route: 064
     Dates: start: 202307, end: 202403
  20. ASPIRIN [Concomitant]
     Active Substance: ASPIRIN
     Dosage: 150 MILLIGRAM, QD (+ PREC.0-0-150 MG/D)
     Route: 064
     Dates: start: 202307, end: 202403
  21. ASPIRIN [Concomitant]
     Active Substance: ASPIRIN
     Dosage: 150 MILLIGRAM, QD (+ PREC.0-0-150 MG/D)
     Dates: start: 202307, end: 202403
  22. ASPIRIN [Concomitant]
     Active Substance: ASPIRIN
     Dosage: 150 MILLIGRAM, QD (+ PREC.0-0-150 MG/D)
     Dates: start: 202307, end: 202403
  23. ASPIRIN [Concomitant]
     Active Substance: ASPIRIN
     Dosage: 150 MILLIGRAM, QD (+ PREC.0-0-150 MG/D)
     Route: 064
     Dates: start: 202307, end: 202403
  24. ASPIRIN [Concomitant]
     Active Substance: ASPIRIN
     Dosage: 150 MILLIGRAM, QD (+ PREC.0-0-150 MG/D)
     Route: 064
     Dates: start: 202307, end: 202403
  25. LEVOTHYROXINE SODIUM [Concomitant]
     Active Substance: LEVOTHYROXINE SODIUM
     Indication: Hypothyroidism
     Dosage: 75 MICROGRAM, QD (+ PREC.)
     Dates: start: 202307, end: 202403
  26. LEVOTHYROXINE SODIUM [Concomitant]
     Active Substance: LEVOTHYROXINE SODIUM
     Dosage: 75 MICROGRAM, QD (+ PREC.)
     Dates: start: 202307, end: 202403
  27. LEVOTHYROXINE SODIUM [Concomitant]
     Active Substance: LEVOTHYROXINE SODIUM
     Dosage: 75 MICROGRAM, QD (+ PREC.)
     Route: 064
     Dates: start: 202307, end: 202403
  28. LEVOTHYROXINE SODIUM [Concomitant]
     Active Substance: LEVOTHYROXINE SODIUM
     Dosage: 75 MICROGRAM, QD (+ PREC.)
     Route: 064
     Dates: start: 202307, end: 202403
  29. LEVOTHYROXINE SODIUM [Concomitant]
     Active Substance: LEVOTHYROXINE SODIUM
     Dosage: 75 MICROGRAM, QD (+ PREC.)
     Dates: start: 202307, end: 202403
  30. LEVOTHYROXINE SODIUM [Concomitant]
     Active Substance: LEVOTHYROXINE SODIUM
     Dosage: 75 MICROGRAM, QD (+ PREC.)
     Dates: start: 202307, end: 202403
  31. LEVOTHYROXINE SODIUM [Concomitant]
     Active Substance: LEVOTHYROXINE SODIUM
     Dosage: 75 MICROGRAM, QD (+ PREC.)
     Route: 064
     Dates: start: 202307, end: 202403
  32. LEVOTHYROXINE SODIUM [Concomitant]
     Active Substance: LEVOTHYROXINE SODIUM
     Dosage: 75 MICROGRAM, QD (+ PREC.)
     Route: 064
     Dates: start: 202307, end: 202403
  33. INSULIN HUMAN [Concomitant]
     Active Substance: INSULIN HUMAN
     Indication: Gestational diabetes
     Dosage: 4 IU, QD (ACCORDING TO PATIENT GESTATIONAL DIABETES WAS MANAGED BY DIET, THIS PROBABLY CHANGED IN)
  34. INSULIN HUMAN [Concomitant]
     Active Substance: INSULIN HUMAN
     Dosage: 4 IU, QD (ACCORDING TO PATIENT GESTATIONAL DIABETES WAS MANAGED BY DIET, THIS PROBABLY CHANGED IN)
  35. INSULIN HUMAN [Concomitant]
     Active Substance: INSULIN HUMAN
     Dosage: 4 IU, QD (ACCORDING TO PATIENT GESTATIONAL DIABETES WAS MANAGED BY DIET, THIS PROBABLY CHANGED IN)
     Route: 064
  36. INSULIN HUMAN [Concomitant]
     Active Substance: INSULIN HUMAN
     Dosage: 4 IU, QD (ACCORDING TO PATIENT GESTATIONAL DIABETES WAS MANAGED BY DIET, THIS PROBABLY CHANGED IN)
     Route: 064
  37. INSULIN HUMAN [Concomitant]
     Active Substance: INSULIN HUMAN
     Dosage: 4 IU, QD (ACCORDING TO PATIENT GESTATIONAL DIABETES WAS MANAGED BY DIET, THIS PROBABLY CHANGED IN)
  38. INSULIN HUMAN [Concomitant]
     Active Substance: INSULIN HUMAN
     Dosage: 4 IU, QD (ACCORDING TO PATIENT GESTATIONAL DIABETES WAS MANAGED BY DIET, THIS PROBABLY CHANGED IN)
  39. INSULIN HUMAN [Concomitant]
     Active Substance: INSULIN HUMAN
     Dosage: 4 IU, QD (ACCORDING TO PATIENT GESTATIONAL DIABETES WAS MANAGED BY DIET, THIS PROBABLY CHANGED IN)
     Route: 064
  40. INSULIN HUMAN [Concomitant]
     Active Substance: INSULIN HUMAN
     Dosage: 4 IU, QD (ACCORDING TO PATIENT GESTATIONAL DIABETES WAS MANAGED BY DIET, THIS PROBABLY CHANGED IN)
     Route: 064
  41. METFORMIN [Concomitant]
     Active Substance: METFORMIN HYDROCHLORIDE
     Indication: Product used for unknown indication
     Dates: start: 202307, end: 202309
  42. METFORMIN [Concomitant]
     Active Substance: METFORMIN HYDROCHLORIDE
     Dates: start: 202307, end: 202309
  43. METFORMIN [Concomitant]
     Active Substance: METFORMIN HYDROCHLORIDE
     Route: 064
     Dates: start: 202307, end: 202309
  44. METFORMIN [Concomitant]
     Active Substance: METFORMIN HYDROCHLORIDE
     Route: 064
     Dates: start: 202307, end: 202309
  45. METFORMIN [Concomitant]
     Active Substance: METFORMIN HYDROCHLORIDE
     Dates: start: 202307, end: 202309
  46. METFORMIN [Concomitant]
     Active Substance: METFORMIN HYDROCHLORIDE
     Dates: start: 202307, end: 202309
  47. METFORMIN [Concomitant]
     Active Substance: METFORMIN HYDROCHLORIDE
     Route: 064
     Dates: start: 202307, end: 202309
  48. METFORMIN [Concomitant]
     Active Substance: METFORMIN HYDROCHLORIDE
     Route: 064
     Dates: start: 202307, end: 202309

REACTIONS (5)
  - Oxygen saturation decreased [Recovered/Resolved]
  - Bradycardia neonatal [Recovered/Resolved]
  - Poor feeding infant [Recovered/Resolved]
  - Small for dates baby [Recovering/Resolving]
  - Foetal exposure during pregnancy [Unknown]

NARRATIVE: CASE EVENT DATE: 20240301
